FAERS Safety Report 24982058 (Version 1)
Quarter: 2025Q1

REPORT INFORMATION
  Report Type: Spontaneous
  Country: PR (occurrence: PR)
  Receive Date: 20250218
  Receipt Date: 20250218
  Transmission Date: 20250409
  Serious: Yes (Other)
  Sender: BRISTOL-MYERS SQUIBB COMPANY
  Company Number: PR-BRISTOL-MYERS SQUIBB COMPANY-2025-022395

PATIENT
  Age: 71 Year
  Sex: Female
  Weight: 64.86 kg

DRUGS (2)
  1. REVLIMID [Suspect]
     Active Substance: LENALIDOMIDE
     Indication: Plasma cell myeloma recurrent
     Dosage: DAILY FOR 14 DAYS AND 14 DAYS OFF
     Route: 048
     Dates: start: 20241202
  2. DARZALEX [Concomitant]
     Active Substance: DARATUMUMAB
     Indication: Product used for unknown indication

REACTIONS (5)
  - Cataract [Recovering/Resolving]
  - Glaucoma [Recovering/Resolving]
  - Rash [Recovering/Resolving]
  - Pain in extremity [Recovering/Resolving]
  - Feeling abnormal [Recovering/Resolving]
